FAERS Safety Report 9704437 (Version 1)
Quarter: 2013Q4

REPORT INFORMATION
  Report Type: Spontaneous
  Country: US (occurrence: US)
  Receive Date: 20131122
  Receipt Date: 20131122
  Transmission Date: 20140711
  Serious: No
  Sender: FDA-Public Use
  Company Number: US-009507513-1311USA007227

PATIENT
  Sex: Female

DRUGS (3)
  1. PROVENTIL [Suspect]
     Dosage: UNK
     Dates: start: 201308
  2. SINGULAIR [Suspect]
     Route: 048
  3. PROVENTIL [Suspect]
     Indication: ASTHMA
     Dosage: UNK
     Dates: start: 201308

REACTIONS (6)
  - Nasal congestion [Unknown]
  - Drug ineffective [Unknown]
  - Exposure during pregnancy [Unknown]
  - Drug dose omission [Unknown]
  - Incorrect route of drug administration [Unknown]
  - Product container issue [Unknown]
